FAERS Safety Report 18858628 (Version 1)
Quarter: 2021Q1

REPORT INFORMATION
  Report Type: Spontaneous
  Country: US (occurrence: US)
  Receive Date: 20210205
  Receipt Date: 20210205
  Transmission Date: 20210420
  Serious: Yes (Hospitalization)
  Sender: FDA-Public Use
  Company Number: None

PATIENT
  Age: 35 Year
  Sex: Female

DRUGS (4)
  1. TEMOZOLOMIDE CAP 20MG [Suspect]
     Active Substance: TEMOZOLOMIDE
     Route: 048
     Dates: start: 20210203
  2. TOPIRAMATE. [Concomitant]
     Active Substance: TOPIRAMATE
  3. ONDANSETRON [Concomitant]
     Active Substance: ONDANSETRON
  4. PHENYTOIN. [Concomitant]
     Active Substance: PHENYTOIN

REACTIONS (2)
  - Seizure [None]
  - Tremor [None]

NARRATIVE: CASE EVENT DATE: 20210204
